FAERS Safety Report 13031933 (Version 2)
Quarter: 2017Q1

REPORT INFORMATION
  Report Type: Spontaneous
  Country: US (occurrence: US)
  Receive Date: 20161215
  Receipt Date: 20170104
  Transmission Date: 20170428
  Serious: No
  Sender: FDA-Public Use
  Company Number: US-GLAXOSMITHKLINE-US2016186189

PATIENT
  Sex: Female

DRUGS (1)
  1. VENTOLIN HFA [Suspect]
     Active Substance: ALBUTEROL SULFATE
     Indication: DYSPNOEA
     Dosage: 1 TO 2 PUFFS, EVERY 4 HRS PRN
     Route: 055

REACTIONS (3)
  - Product cleaning inadequate [Unknown]
  - Drug dispensing error [Unknown]
  - Device use error [Unknown]
